FAERS Safety Report 4947455-1 (Version None)
Quarter: 2006Q1

REPORT INFORMATION
  Report Type: 
  Country: None (occurrence: None)
  Receive Date: 20060320
  Receipt Date: 20060316
  Transmission Date: 20060701
  Serious: Yes (Hospitalization)
  Sender: FDA-Public Use
  Company Number: FR-SP-2006-00610

PATIENT
  Age: 77 Year
  Sex: Male
  Weight: 60 kg

DRUGS (1)
  1. IMMUCYST [Suspect]
     Indication: BLADDER CANCER
     Route: 043
     Dates: start: 20051201, end: 20060105

REACTIONS (4)
  - GASTROINTESTINAL DISORDER [None]
  - PROSTATIC DISORDER [None]
  - PROSTATITIS TUBERCULOUS [None]
  - RECTAL ULCER [None]
